FAERS Safety Report 16663660 (Version 9)
Quarter: 2024Q2

REPORT INFORMATION
  Report Type: Spontaneous
  Country: US (occurrence: US)
  Receive Date: 20190802
  Receipt Date: 20240417
  Transmission Date: 20240716
  Serious: Yes (Other)
  Sender: FDA-Public Use
  Company Number: US-PFIZER INC-2017428287

PATIENT
  Age: 70 Year
  Sex: Male

DRUGS (5)
  1. BOSULIF [Suspect]
     Active Substance: BOSUTINIB MONOHYDRATE
     Indication: Philadelphia positive chronic myeloid leukaemia
     Dosage: 100 MG, 1X/DAY
     Dates: start: 20161128
  2. BOSULIF [Suspect]
     Active Substance: BOSUTINIB MONOHYDRATE
     Dosage: TAKE WITH FOOD
     Route: 048
  3. BOSULIF [Suspect]
     Active Substance: BOSUTINIB MONOHYDRATE
     Dosage: TAKE 2 TABLETS (200 MG) DAILY
     Route: 048
     Dates: start: 201905, end: 20230713
  4. BOSULIF [Suspect]
     Active Substance: BOSUTINIB MONOHYDRATE
     Dosage: 100 MG, DAILY
     Route: 048
     Dates: start: 20231030
  5. BOSULIF [Suspect]
     Active Substance: BOSUTINIB MONOHYDRATE
     Dosage: TAKE 3 TABLETS (300 MG) DAILY. TAKE WITH FOOD
     Route: 048

REACTIONS (4)
  - Atrial fibrillation [Unknown]
  - Neoplasm progression [Unknown]
  - Pleural effusion [Unknown]
  - Road traffic accident [Unknown]

NARRATIVE: CASE EVENT DATE: 20181001
